FAERS Safety Report 5584094-6 (Version None)
Quarter: 2007Q4

REPORT INFORMATION
  Report Type: 
  Country: None (occurrence: None)
  Receive Date: 20071130
  Receipt Date: 20070813
  Transmission Date: 20080405
  Serious: Yes (Other)
  Sender: FDA-Public Use
  Company Number: WAES 0708USA02308

PATIENT
  Age: 74 Year
  Sex: Female

DRUGS (1)
  1. FOSAMAX [Suspect]
     Indication: OSTEOPOROSIS
     Dosage: 10 MG/DAILY/PO;70 MG/WKY/PO
     Route: 048

REACTIONS (3)
  - JAW FRACTURE [None]
  - OSTEONECROSIS [None]
  - ROAD TRAFFIC ACCIDENT [None]
